FAERS Safety Report 18893668 (Version 2)
Quarter: 2021Q1

REPORT INFORMATION
  Report Type: Spontaneous
  Country: US (occurrence: US)
  Receive Date: 20210215
  Receipt Date: 20210217
  Transmission Date: 20210420
  Serious: Yes (Hospitalization, Other)
  Sender: FDA-Public Use
  Company Number: US-PURDUE-USA-2020-0200425

PATIENT
  Age: 45 Year
  Sex: Male

DRUGS (56)
  1. HYDROCODONE BITARTRATE AND ACETAMINOPHEN [Suspect]
     Active Substance: ACETAMINOPHEN\HYDROCODONE BITARTRATE
     Indication: SPINAL OPERATION
     Dosage: 5?300, QID
     Route: 048
  2. FLOMAX [Concomitant]
     Active Substance: TAMSULOSIN HYDROCHLORIDE
     Indication: SPINAL OPERATION
     Dosage: 40MG
     Route: 048
  3. AZITHROMYCIN ANHYDROUS. [Concomitant]
     Active Substance: AZITHROMYCIN ANHYDROUS
     Indication: SPINAL OPERATION
     Dosage: 250MG
     Route: 048
  4. LISINOPRIL AND HYDROCHLOROTHIAZIDE [Concomitant]
     Active Substance: HYDROCHLOROTHIAZIDE\LISINOPRIL
     Indication: SPINAL OPERATION
     Dosage: 20/250MG
     Route: 048
  5. LIDOCAINE. [Concomitant]
     Active Substance: LIDOCAINE
     Indication: SPINAL OPERATION
     Dosage: UNKNOWN
     Route: 065
  6. DIAZEPAM. [Concomitant]
     Active Substance: DIAZEPAM
     Indication: SPINAL OPERATION
     Dosage: 10MG
     Route: 048
  7. PARAFON FORTE DSC [Concomitant]
     Active Substance: CHLORZOXAZONE
     Indication: SPINAL OPERATION
     Dosage: UNKNOWN
     Route: 048
  8. DILAUDID [Suspect]
     Active Substance: HYDROMORPHONE HYDROCHLORIDE
     Indication: SPINAL OPERATION
     Dosage: UNKNOWN
     Route: 048
  9. MORPHINE SULFATE EXTENDED?RELEASE TABLETS (RHODES 74?769, 74?862) [Suspect]
     Active Substance: MORPHINE SULFATE
     Indication: SPINAL OPERATION
     Dosage: UNKNOWN
     Route: 048
  10. TRAMADOL. [Suspect]
     Active Substance: TRAMADOL
     Indication: SPINAL OPERATION
     Dosage: UNKNOWN
     Route: 065
  11. FENTANYL. [Suspect]
     Active Substance: FENTANYL
     Indication: SPINAL OPERATION
     Dosage: 50MCG/HOUR
     Route: 065
  12. LYRICA [Concomitant]
     Active Substance: PREGABALIN
     Indication: SPINAL OPERATION
     Dosage: 150MG
     Route: 048
  13. TRAMADOL HCL [Concomitant]
     Active Substance: TRAMADOL HYDROCHLORIDE
     Indication: SPINAL OPERATION
     Dosage: 50MG
     Route: 048
  14. AMBIEN CR [Concomitant]
     Active Substance: ZOLPIDEM TARTRATE
     Indication: SPINAL OPERATION
     Dosage: 12.5MG
     Route: 048
  15. CLONAZEPAM. [Concomitant]
     Active Substance: CLONAZEPAM
     Indication: SPINAL OPERATION
     Dosage: 0.5MG
     Route: 048
  16. SOMA [Concomitant]
     Active Substance: CARISOPRODOL
     Indication: SPINAL OPERATION
     Dosage: 350MG
     Route: 048
  17. LISINOPRIL. [Concomitant]
     Active Substance: LISINOPRIL
     Indication: SPINAL OPERATION
     Dosage: 20MG, QD
     Route: 048
  18. DULOXETINE. [Concomitant]
     Active Substance: DULOXETINE
     Indication: SPINAL OPERATION
     Dosage: 60MG
     Route: 048
  19. OXYCODONE HCL TABLETS (RHODES 91?490) [Suspect]
     Active Substance: OXYCODONE HYDROCHLORIDE
     Indication: SPINAL OPERATION
     Dosage: 5MG, BID, PRN
     Route: 048
  20. OXYCODONE HCL CR TABLETS (SIMILAR TO NDA 22?272) [Suspect]
     Active Substance: OXYCODONE HYDROCHLORIDE
     Indication: SPINAL OPERATION
     Dosage: UNKNOWN
     Route: 048
  21. TOPIRAMATE. [Concomitant]
     Active Substance: TOPIRAMATE
     Indication: SPINAL OPERATION
     Dosage: 25MG
     Route: 048
  22. NAPROXEN. [Concomitant]
     Active Substance: NAPROXEN
     Indication: SPINAL OPERATION
     Dosage: 500MG
     Route: 048
  23. CARBIDOPA AND LEVODOPA [Concomitant]
     Active Substance: CARBIDOPA\LEVODOPA
     Indication: SPINAL OPERATION
     Dosage: 25?100
     Route: 048
  24. TOPAMAX [Concomitant]
     Active Substance: TOPIRAMATE
     Indication: SPINAL OPERATION
     Dosage: 25MG/ BID
     Route: 048
  25. MIRAPEX [Concomitant]
     Active Substance: PRAMIPEXOLE DIHYDROCHLORIDE
     Indication: SPINAL OPERATION
     Dosage: 0.5MG
     Route: 048
  26. NAPROSYN [Concomitant]
     Active Substance: NAPROXEN
     Indication: SPINAL OPERATION
     Dosage: 500MG, BID
     Route: 048
  27. OPANA [Suspect]
     Active Substance: OXYMORPHONE HYDROCHLORIDE
     Indication: SPINAL OPERATION
     Dosage: 20MG
     Route: 048
  28. METHOCARBAMOL. [Concomitant]
     Active Substance: METHOCARBAMOL
     Indication: SPINAL OPERATION
     Dosage: 500MG
     Route: 048
  29. PENICILLIN VK [Concomitant]
     Active Substance: PENICILLIN V POTASSIUM
     Indication: SPINAL OPERATION
     Dosage: 500MG
     Route: 048
  30. MECLIZINE [Concomitant]
     Active Substance: MECLIZINE HYDROCHLORIDE
     Indication: SPINAL OPERATION
     Dosage: 12.5MG, BID, PRN
     Route: 048
  31. ONDANSETRON [Concomitant]
     Active Substance: ONDANSETRON
     Indication: SPINAL OPERATION
     Dosage: 4MG, QID, PRN
     Route: 060
  32. HYDROCHLOROTHIAZIDE. [Concomitant]
     Active Substance: HYDROCHLOROTHIAZIDE
     Indication: SPINAL OPERATION
     Dosage: 25MG, QD
     Route: 048
  33. AMLODIPINE BESYLATE. [Concomitant]
     Active Substance: AMLODIPINE BESYLATE
     Indication: SPINAL OPERATION
     Dosage: 5MG, QD
     Route: 048
  34. ACETAMINOPHEN AND CODEINE [Concomitant]
     Active Substance: ACETAMINOPHEN\CODEINE PHOSPHATE
     Indication: SPINAL OPERATION
     Dosage: 300/30MG
     Route: 048
  35. OXYCONTIN [Suspect]
     Active Substance: OXYCODONE HYDROCHLORIDE
     Indication: SPINAL OPERATION
     Dosage: 40MG
     Route: 048
  36. ROZEREM [Concomitant]
     Active Substance: RAMELTEON
     Indication: SPINAL OPERATION
     Dosage: 8MG
     Route: 048
  37. EMBEDA [Concomitant]
     Active Substance: MORPHINE SULFATE\NALTREXONE HYDROCHLORIDE
     Indication: SPINAL OPERATION
     Dosage: 60?24MG
     Route: 048
  38. NORTRIPTYLINE HCL [Concomitant]
     Active Substance: NORTRIPTYLINE HYDROCHLORIDE
     Indication: SPINAL OPERATION
     Dosage: 50MG
     Route: 048
  39. ZOLPIDEM TARTRATE. [Concomitant]
     Active Substance: ZOLPIDEM TARTRATE
     Indication: SPINAL OPERATION
     Dosage: 12.5MG
     Route: 048
  40. CLINDAMYCIN. [Concomitant]
     Active Substance: CLINDAMYCIN
     Indication: SPINAL OPERATION
     Dosage: 300MG, TID
     Route: 048
  41. TIZANIDINE. [Concomitant]
     Active Substance: TIZANIDINE
     Indication: SPINAL OPERATION
     Dosage: 4MG, TID
     Route: 048
  42. OXYCODONE/ ACETAMINOPHEN TABLETS [Suspect]
     Active Substance: ACETAMINOPHEN\OXYCODONE HYDROCHLORIDE
     Indication: SPINAL OPERATION
     Dosage: 10?325MG
     Route: 048
  43. EMBEDA [Concomitant]
     Active Substance: MORPHINE SULFATE\NALTREXONE HYDROCHLORIDE
     Dosage: 80?32MG
     Route: 048
  44. CYMBALTA [Concomitant]
     Active Substance: DULOXETINE HYDROCHLORIDE
     Indication: SPINAL OPERATION
     Dosage: 60MG
     Route: 048
  45. CARISOPRODOL. [Concomitant]
     Active Substance: CARISOPRODOL
     Indication: SPINAL OPERATION
     Dosage: 350MG
     Route: 048
  46. AMITRIPTYLINE HCL [Concomitant]
     Active Substance: AMITRIPTYLINE
     Indication: SPINAL OPERATION
     Dosage: 10MG
     Route: 048
  47. TAMSULOSIN HCL [Concomitant]
     Active Substance: TAMSULOSIN HYDROCHLORIDE
     Indication: SPINAL OPERATION
     Dosage: 0.4MG
     Route: 048
  48. PRAMIPEXOLE. [Concomitant]
     Active Substance: PRAMIPEXOLE
     Indication: SPINAL OPERATION
     Dosage: 0.25MG
     Route: 048
  49. CHLORZOXAZONE. [Concomitant]
     Active Substance: CHLORZOXAZONE
     Indication: SPINAL OPERATION
     Dosage: 500MG, TID
     Route: 048
  50. GABAPENTIN. [Concomitant]
     Active Substance: GABAPENTIN
     Indication: SPINAL OPERATION
     Dosage: 300MG, QD
     Route: 048
  51. ULTRAM ER [Concomitant]
     Active Substance: TRAMADOL HYDROCHLORIDE
     Indication: SPINAL OPERATION
     Dosage: 300MG, QD
     Route: 048
  52. LEVITRA [Concomitant]
     Active Substance: VARDENAFIL HYDROCHLORIDE
     Indication: SPINAL OPERATION
     Dosage: 20MG
     Route: 048
  53. IBUPROFEN. [Concomitant]
     Active Substance: IBUPROFEN
     Indication: SPINAL OPERATION
     Dosage: 800MG
     Route: 048
  54. SUPREP BOWEL PREP [Concomitant]
     Active Substance: MAGNESIUM SULFATE\POTASSIUM SULFATE\SODIUM SULFATE
     Indication: SPINAL OPERATION
     Route: 065
  55. MELOXICAM. [Concomitant]
     Active Substance: MELOXICAM
     Indication: SPINAL OPERATION
     Dosage: 7.5MG
     Route: 048
  56. CEPHALEXIN                         /00145501/ [Concomitant]
     Active Substance: CEPHALEXIN
     Indication: SPINAL OPERATION
     Dosage: 500MG, TID
     Route: 048

REACTIONS (4)
  - Somatic symptom disorder [Unknown]
  - Drug dependence [Unknown]
  - Overdose [Unknown]
  - Drug withdrawal syndrome [Unknown]
